FAERS Safety Report 4738950-9 (Version None)
Quarter: 2005Q3

REPORT INFORMATION
  Report Type: 
  Country: None (occurrence: None)
  Receive Date: 20050801
  Receipt Date: 20040810
  Transmission Date: 20060218
  Serious: Yes (Other)
  Sender: FDA-Public Use
  Company Number: 208352

PATIENT
  Age: 49 Year
  Sex: Female

DRUGS (4)
  1. HERCEPTIN [Suspect]
     Indication: BREAST CANCER METASTATIC
     Dosage: 2 MG, 1/WEEK, INTRAVENOUS;  400 MG, Q3W, INTRAVENOUS
     Route: 042
     Dates: start: 20020101
  2. HERCEPTIN [Suspect]
     Indication: BREAST CANCER METASTATIC
     Dosage: 2 MG, 1/WEEK, INTRAVENOUS;  400 MG, Q3W, INTRAVENOUS
     Route: 042
     Dates: start: 20020501
  3. TAXOTERE [Concomitant]
  4. ZOMETA [Concomitant]

REACTIONS (1)
  - PLATELET COUNT DECREASED [None]
